FAERS Safety Report 23192177 (Version 2)
Quarter: 2023Q4

REPORT INFORMATION
  Report Type: Spontaneous
  Country: US (occurrence: US)
  Receive Date: 20231116
  Receipt Date: 20231124
  Transmission Date: 20240110
  Serious: No
  Sender: FDA-Public Use
  Company Number: US-OPELLA-2023OHG013700

PATIENT
  Sex: Female

DRUGS (2)
  1. ICY HOT [Suspect]
     Active Substance: MENTHOL\METHYL SALICYLATE
     Indication: Product used for unknown indication
     Dosage: 2,96 G; 0,74 G/74 M, ?PACKAGE SIZE-BOT X 1 + APPLICATOR 1
     Route: 065
  2. ICY HOT [Suspect]
     Active Substance: MENTHOL\METHYL SALICYLATE
     Dosage: 2,96 G; 0,74 G/74 M, ?PACKAGE SIZE-BOT X 1 + APPLICATOR 1
     Route: 065

REACTIONS (2)
  - Drug ineffective [Unknown]
  - No adverse event [Unknown]
